FAERS Safety Report 20886642 (Version 2)
Quarter: 2022Q2

REPORT INFORMATION
  Report Type: Spontaneous
  Country: US (occurrence: US)
  Receive Date: 20220527
  Receipt Date: 20220609
  Transmission Date: 20220721
  Serious: Yes (Hospitalization)
  Sender: FDA-Public Use
  Company Number: US-CELGENE-USA-20220301340

PATIENT
  Age: 50 Year
  Sex: Female
  Weight: 88.0 kg

DRUGS (1)
  1. REVLIMID [Suspect]
     Active Substance: LENALIDOMIDE
     Indication: Plasma cell myeloma
     Dosage: 10 MG, DAILY FOR 21 DAYS
     Route: 048
     Dates: start: 20211027

REACTIONS (5)
  - Memory impairment [Recovered/Resolved]
  - COVID-19 [Recovered/Resolved]
  - Somnolence [Recovered/Resolved]
  - Urinary tract infection [Unknown]
  - Full blood count decreased [Unknown]

NARRATIVE: CASE EVENT DATE: 20211227
